FAERS Safety Report 23337783 (Version 4)
Quarter: 2024Q2

REPORT INFORMATION
  Report Type: Spontaneous
  Country: US (occurrence: US)
  Receive Date: 20231226
  Receipt Date: 20240417
  Transmission Date: 20240716
  Serious: No
  Sender: FDA-Public Use
  Company Number: US-PFIZER INC-PV202300070928

PATIENT
  Age: 78 Year
  Sex: Female
  Weight: 74.83 kg

DRUGS (2)
  1. XELJANZ XR [Suspect]
     Active Substance: TOFACITINIB CITRATE
     Indication: Rheumatoid arthritis
     Dosage: UNK
  2. ACV Keto plus [Concomitant]
     Indication: Weight decreased
     Dosage: UNK

REACTIONS (2)
  - COVID-19 [Unknown]
  - Malaise [Unknown]
